FAERS Safety Report 7303791-5 (Version None)
Quarter: 2011Q1

REPORT INFORMATION
  Report Type: 
  Country: None (occurrence: None)
  Receive Date: 20110221
  Receipt Date: 20110209
  Transmission Date: 20110831
  Serious: Yes (Hospitalization)
  Sender: FDA-Public Use
  Company Number: IT-ROCHE-759140

PATIENT
  Sex: Female
  Weight: 65 kg

DRUGS (5)
  1. BEVACIZUMAB [Suspect]
     Dosage: FORM :INFUSION
     Route: 042
     Dates: start: 20110107
  2. OLMESARTAN MEDOXOMIL [Concomitant]
  3. CAPECITABINE [Suspect]
     Route: 042
  4. DOCETAXEL [Suspect]
     Dosage: FORM :INFUSION
     Route: 042
     Dates: start: 20110107
  5. NEBIVOLOLO CLORIDRATO [Concomitant]

REACTIONS (1)
  - ATRIAL FIBRILLATION [None]
